FAERS Safety Report 7787087-3 (Version None)
Quarter: 2011Q3

REPORT INFORMATION
  Report Type: 
  Country: None (occurrence: None)
  Receive Date: 20110929
  Receipt Date: 20110922
  Transmission Date: 20111222
  Serious: Yes (Hospitalization)
  Sender: FDA-Public Use
  Company Number: NZ-B.I. PHARMACEUTICALS,INC./RIDGEFIELD-2011-AU-01544AU

PATIENT
  Age: 9 Decade
  Sex: Female

DRUGS (1)
  1. PRADAXA [Suspect]
     Dosage: 220 MG

REACTIONS (3)
  - CONFUSIONAL STATE [None]
  - CEREBELLAR INFARCTION [None]
  - ABDOMINAL PAIN UPPER [None]
